FAERS Safety Report 16600221 (Version 1)
Quarter: 2019Q3

REPORT INFORMATION
  Report Type: Spontaneous
  Country: US (occurrence: US)
  Receive Date: 20190719
  Receipt Date: 20190719
  Transmission Date: 20191004
  Serious: No
  Sender: FDA-Public Use
  Company Number: US-ELI_LILLY_AND_COMPANY-US201907009848

PATIENT
  Sex: Male

DRUGS (2)
  1. ZYPREXA [Suspect]
     Active Substance: OLANZAPINE
     Indication: PRODUCT USED FOR UNKNOWN INDICATION
     Dosage: 10 MG, BID
     Route: 065
  2. NUEDEXTA [DEXTROMETHORPHAN HYDROBROMIDE;QUINI [Concomitant]
     Indication: AFFECT LABILITY
     Dosage: 1 DOSAGE FORM (20/10 MG), BID
     Route: 048

REACTIONS (2)
  - Sedation [Unknown]
  - Blood cholesterol increased [Unknown]
